FAERS Safety Report 5126423-3 (Version None)
Quarter: 2006Q4

REPORT INFORMATION
  Report Type: 
  Country: None (occurrence: None)
  Receive Date: 20061010
  Receipt Date: 20061002
  Transmission Date: 20070319
  Serious: Yes (Other)
  Sender: FDA-Public Use
  Company Number: 2006119189

PATIENT
  Age: 55 Year
  Sex: Female
  Weight: 74.8435 kg

DRUGS (2)
  1. ROLAIDS [Suspect]
     Dosage: 2 TABLETS ONCE, ORAL
     Route: 048
     Dates: start: 20060929, end: 20060929
  2. VENLAFAXINE HCL [Concomitant]

REACTIONS (2)
  - EYE SWELLING [None]
  - URTICARIA GENERALISED [None]
